FAERS Safety Report 9746177 (Version 1)
Quarter: 2013Q4

REPORT INFORMATION
  Report Type: Spontaneous
  Country: FR (occurrence: FR)
  Receive Date: 20131211
  Receipt Date: 20131211
  Transmission Date: 20140711
  Serious: No
  Sender: FDA-Public Use
  Company Number: FR-GILEAD-2009-0026188

PATIENT
  Sex: Female

DRUGS (3)
  1. ATRIPLA [Suspect]
     Route: 048
  2. TRUVADA [Concomitant]
     Indication: PRODUCT USED FOR UNKNOWN INDICATION
  3. SUSTIVA [Concomitant]

REACTIONS (1)
  - Mental disorder [Unknown]
